FAERS Safety Report 9815388 (Version 1)
Quarter: 2014Q1

REPORT INFORMATION
  Report Type: Spontaneous
  Country: ES (occurrence: ES)
  Receive Date: 20140114
  Receipt Date: 20140114
  Transmission Date: 20141002
  Serious: Yes (Hospitalization)
  Sender: FDA-Public Use
  Company Number: ES-ASTRAZENECA-2014SE01818

PATIENT
  Age: 86 Year
  Sex: Male

DRUGS (15)
  1. BRILIQUE [Suspect]
     Indication: MYOCARDIAL INFARCTION
     Route: 048
     Dates: start: 20121228, end: 20130326
  2. ADIRO [Interacting]
     Indication: MYOCARDIAL INFARCTION
     Route: 048
     Dates: start: 20121201, end: 20130326
  3. ALOPURINOL [Concomitant]
     Route: 048
  4. FUROSEMIDE [Concomitant]
     Indication: CARDIAC FAILURE CONGESTIVE
     Route: 048
     Dates: start: 20121201
  5. BISOPROLOL [Concomitant]
     Indication: CARDIAC FAILURE CONGESTIVE
     Route: 048
     Dates: start: 20121201
  6. METFORMIN [Concomitant]
     Indication: TYPE 2 DIABETES MELLITUS
     Route: 048
     Dates: start: 20121228
  7. LOSARTAN [Concomitant]
     Indication: HYPERTENSION
     Route: 048
     Dates: start: 20121201
  8. ATROVENT [Concomitant]
     Route: 055
  9. DEPRAX [Concomitant]
     Route: 048
     Dates: start: 20121228
  10. FERO-GRADUMET [Concomitant]
     Route: 048
     Dates: start: 20121228
  11. LEXATIN [Concomitant]
     Route: 048
     Dates: start: 20121228
  12. NEXIUM [Concomitant]
     Route: 048
  13. POTASION [Concomitant]
     Dosage: 264 MG/ML
     Route: 048
     Dates: start: 20121228
  14. SERETIDE [Concomitant]
     Dosage: 25 MICROGRAM/125 MICROGRAM
     Route: 055
  15. THERVAN [Concomitant]
     Indication: DYSLIPIDAEMIA
     Route: 048
     Dates: start: 20121228

REACTIONS (2)
  - Drug interaction [Unknown]
  - Gastrointestinal haemorrhage [Recovered/Resolved]
